FAERS Safety Report 4723382-X (Version None)
Quarter: 2005Q3

REPORT INFORMATION
  Report Type: 
  Country: None (occurrence: None)
  Receive Date: 20050719
  Receipt Date: 20041025
  Transmission Date: 20060218
  Serious: Yes (Hospitalization)
  Sender: FDA-Public Use
  Company Number: 206777

PATIENT
  Sex: Male
  Weight: 65.7716 kg

DRUGS (1)
  1. AVONEX [Suspect]
     Indication: MULTIPLE SCLEROSIS
     Dosage: 30 UG; QW; IM
     Route: 030
     Dates: start: 19950101, end: 19960101

REACTIONS (5)
  - BLINDNESS [None]
  - DEPRESSION [None]
  - MEMORY IMPAIRMENT [None]
  - NEUTRALISING ANTIBODIES [None]
  - SUICIDE ATTEMPT [None]
